FAERS Safety Report 13322950 (Version 2)
Quarter: 2017Q1

REPORT INFORMATION
  Report Type: Spontaneous
  Country: BE (occurrence: BE)
  Receive Date: 20170310
  Receipt Date: 20170324
  Transmission Date: 20170428
  Serious: Yes (Other)
  Sender: FDA-Public Use
  Company Number: BE-IPSEN BIOPHARMACEUTICALS, INC.-2017-01878

PATIENT
  Age: 63 Year
  Sex: Male

DRUGS (7)
  1. BEFACT FORTE [Concomitant]
     Dates: start: 20101001
  2. RUPATALL [Concomitant]
     Dates: start: 20101001
  3. SOMATULINE AUTOGEL INJECTABLE 120MG [Suspect]
     Active Substance: LANREOTIDE ACETATE
     Indication: OFF LABEL USE
  4. SOMATULINE AUTOGEL INJECTABLE 120MG [Suspect]
     Active Substance: LANREOTIDE ACETATE
     Indication: GASTRINOMA
     Dosage: 120 MG
     Route: 058
     Dates: start: 201112
  5. NEXIUM [Concomitant]
     Active Substance: ESOMEPRAZOLE MAGNESIUM
     Dates: start: 20101001
  6. ZYLORIC [Concomitant]
     Active Substance: ALLOPURINOL
     Dates: start: 20101001
  7. ALDACTONE [Concomitant]
     Active Substance: SPIRONOLACTONE
     Dates: start: 20101001

REACTIONS (4)
  - Erysipelas [Recovered/Resolved]
  - Injection site infection [Recovered/Resolved]
  - Off label use [Unknown]
  - Inappropriate schedule of drug administration [Unknown]

NARRATIVE: CASE EVENT DATE: 20121226
